FAERS Safety Report 20719548 (Version 1)
Quarter: 2022Q2

REPORT INFORMATION
  Report Type: Spontaneous
  Country: US (occurrence: US)
  Receive Date: 20220418
  Receipt Date: 20220418
  Transmission Date: 20220721
  Serious: Yes (Hospitalization)
  Sender: FDA-Public Use
  Company Number: US-MYLANLABS-2022M1026656

PATIENT
  Age: 18 Year
  Sex: Female

DRUGS (6)
  1. FOMEPIZOLE [Suspect]
     Active Substance: FOMEPIZOLE
     Indication: Overdose
     Dosage: 15 MILLIGRAM/KILOGRAM, OVER 30 MIN
     Route: 065
  2. FOMEPIZOLE [Suspect]
     Active Substance: FOMEPIZOLE
     Dosage: UNK, SECOND DOSE OF FOMEPIZOLE AT HOUR 21.
     Route: 065
  3. ACETAMINOPHEN [Suspect]
     Active Substance: ACETAMINOPHEN
     Indication: Product used for unknown indication
     Dosage: 50 DOSAGE FORM
     Route: 048
  4. DIPHENHYDRAMINE [Suspect]
     Active Substance: DIPHENHYDRAMINE
     Indication: Product used for unknown indication
     Dosage: 12 TO 24 TABLETS
     Route: 048
  5. ACETYLCYSTEINE [Concomitant]
     Active Substance: ACETYLCYSTEINE
     Indication: Overdose
     Dosage: 150 MILLIGRAM/KILOGRAM, LOADING DOSE OVER 1 H
     Route: 042
  6. ACETYLCYSTEINE [Concomitant]
     Active Substance: ACETYLCYSTEINE
     Dosage: 12.5 MILLIGRAM/KILOGRAM/HOUR
     Route: 042

REACTIONS (2)
  - Intentional overdose [Unknown]
  - Off label use [Unknown]
